FAERS Safety Report 9831094 (Version 1)
Quarter: 2014Q1

REPORT INFORMATION
  Report Type: Spontaneous
  Country: AT (occurrence: AT)
  Receive Date: 20140120
  Receipt Date: 20140120
  Transmission Date: 20141002
  Serious: Yes (Hospitalization)
  Sender: FDA-Public Use
  Company Number: AT-MYLANLABS-2014S1000484

PATIENT
  Age: 71 Year
  Sex: Female
  Weight: 81.7 kg

DRUGS (4)
  1. ENALAPRIL [Suspect]
     Indication: HYPERTENSION
  2. CLINDAMYCIN [Concomitant]
     Indication: ERYSIPELAS
  3. TAZONAM [Concomitant]
     Indication: ERYSIPELAS
     Dosage: STRENGTH - 4 GM / 0.5 GM
  4. CEFAZOLIN [Concomitant]
     Indication: ERYSIPELAS

REACTIONS (3)
  - Angioedema [Recovered/Resolved]
  - Erysipelas [Unknown]
  - Respiratory tract infection [Unknown]
